FAERS Safety Report 14108880 (Version 1)
Quarter: 2017Q4

REPORT INFORMATION
  Report Type: Spontaneous
  Country: PT (occurrence: PT)
  Receive Date: 20171019
  Receipt Date: 20171019
  Transmission Date: 20180321
  Serious: Yes (Other)
  Sender: FDA-Public Use
  Company Number: PT-ABBVIE-17P-130-2056197-00

PATIENT
  Age: 53 Year
  Sex: Female

DRUGS (2)
  1. LEVODOPA/CARBIDOPA [Concomitant]
     Active Substance: CARBIDOPA\LEVODOPA
     Indication: PRODUCT USED FOR UNKNOWN INDICATION
     Route: 048
  2. DUODOPA [Suspect]
     Active Substance: CARBIDOPA\LEVODOPA
     Indication: PARKINSON^S DISEASE
     Route: 050

REACTIONS (7)
  - Colonic fistula [Unknown]
  - Drug ineffective [Unknown]
  - Bezoar [Unknown]
  - Gastrointestinal wall thickening [Unknown]
  - Device occlusion [Recovered/Resolved]
  - Medical device site reaction [Unknown]
  - Psychomotor hyperactivity [Unknown]
